FAERS Safety Report 15557769 (Version 1)
Quarter: 2018Q4

REPORT INFORMATION
  Report Type: Report from Study
  Country: None (occurrence: US)
  Receive Date: 20181027
  Receipt Date: 20181027
  Transmission Date: 20190205
  Serious: Yes (Other)
  Sender: FDA-Public Use
  Company Number: US-UNICHEM PHARMACEUTICALS (USA) INC-UCM201810-000279

PATIENT
  Sex: Female

DRUGS (4)
  1. BUPIVACAINE. [Suspect]
     Active Substance: BUPIVACAINE
  2. IBUPROFEN. [Concomitant]
     Active Substance: IBUPROFEN
  3. CLONIDINE HCL [Suspect]
     Active Substance: CLONIDINE HYDROCHLORIDE
     Dosage: 1.2 MICRGRAM/ML
  4. ACETAMINOPHEN. [Concomitant]
     Active Substance: ACETAMINOPHEN
     Route: 048

REACTIONS (2)
  - Hypotension [Recovered/Resolved]
  - Exposure during pregnancy [Unknown]
